FAERS Safety Report 8373664-8 (Version None)
Quarter: 2012Q2

REPORT INFORMATION
  Report Type: 
  Country: None (occurrence: None)
  Receive Date: 20120521
  Receipt Date: 20120413
  Transmission Date: 20120825
  Serious: No
  Sender: FDA-Public Use
  Company Number: US-MYLANLABS-2012S1003848

PATIENT
  Age: 54 Year
  Sex: Male
  Weight: 112.95 kg

DRUGS (4)
  1. LANSOPRAZOLE [Suspect]
     Indication: GASTROOESOPHAGEAL REFLUX DISEASE
     Route: 048
     Dates: start: 20120201, end: 20120209
  2. LANSOPRAZOLE [Suspect]
     Route: 048
     Dates: start: 20120210, end: 20120222
  3. LANSOPRAZOLE [Suspect]
     Route: 048
     Dates: start: 20120210, end: 20120222
  4. LANSOPRAZOLE [Suspect]
     Route: 048
     Dates: start: 20120201, end: 20120209

REACTIONS (5)
  - DYSPEPSIA [None]
  - INCREASED APPETITE [None]
  - FLATULENCE [None]
  - DIARRHOEA [None]
  - NAUSEA [None]
